FAERS Safety Report 15945721 (Version 2)
Quarter: 2019Q1

REPORT INFORMATION
  Report Type: Spontaneous
  Country: SI (occurrence: SI)
  Receive Date: 20190211
  Receipt Date: 20190227
  Transmission Date: 20190417
  Serious: Yes (Other)
  Sender: FDA-Public Use
  Company Number: SI-ACCORD-106641

PATIENT
  Age: 51 Year
  Sex: Male

DRUGS (4)
  1. METHYLPREDNISOLONE. [Suspect]
     Active Substance: METHYLPREDNISOLONE
     Indication: RENAL TRANSPLANT
     Route: 065
  2. BASILIXIMAB [Suspect]
     Active Substance: BASILIXIMAB
     Indication: IMMUNOSUPPRESSION
  3. MYCOPHENOLIC ACID. [Suspect]
     Active Substance: MYCOPHENOLIC ACID
     Indication: IMMUNOSUPPRESSION
     Route: 065
  4. TACROLIMUS. [Suspect]
     Active Substance: TACROLIMUS
     Indication: RENAL TRANSPLANT
     Route: 065

REACTIONS (3)
  - Polyomavirus-associated nephropathy [Unknown]
  - Ureteric stenosis [Unknown]
  - BK virus infection [Recovering/Resolving]
